FAERS Safety Report 14374465 (Version 1)
Quarter: 2018Q1

REPORT INFORMATION
  Report Type: Spontaneous
  Country: AR (occurrence: AR)
  Receive Date: 20180111
  Receipt Date: 20180111
  Transmission Date: 20180509
  Serious: Yes (Other)
  Sender: FDA-Public Use
  Company Number: AR-AMGEN-ARGSP2018003573

PATIENT
  Age: 38 Year
  Sex: Female

DRUGS (1)
  1. ENBREL [Suspect]
     Active Substance: ETANERCEPT
     Indication: RHEUMATOID ARTHRITIS
     Dosage: 50 MG, WEEKLY
     Route: 065
     Dates: start: 20170105

REACTIONS (7)
  - Ovarian fibroma [Recovering/Resolving]
  - Asthenia [Recovering/Resolving]
  - Wrong technique in product usage process [Unknown]
  - Haemorrhage [Recovering/Resolving]
  - Neuralgia [Recovering/Resolving]
  - Polymenorrhoea [Recovering/Resolving]
  - Anaemia [Recovering/Resolving]

NARRATIVE: CASE EVENT DATE: 201707
